FAERS Safety Report 9914956 (Version 1)
Quarter: 2014Q1

REPORT INFORMATION
  Report Type: Spontaneous
  Country: IT (occurrence: IT)
  Receive Date: 20140220
  Receipt Date: 20140220
  Transmission Date: 20141002
  Serious: Yes (Other)
  Sender: FDA-Public Use
  Company Number: PHHY2014IT017931

PATIENT
  Age: 50 Year
  Sex: Female

DRUGS (1)
  1. TOPIRAMATE [Suspect]
     Indication: HEADACHE
     Dosage: 50 MG, UNK
     Dates: start: 201001

REACTIONS (5)
  - Granuloma annulare [Recovered/Resolved]
  - Skin mass [Recovered/Resolved]
  - Skin lesion [Recovered/Resolved]
  - Post inflammatory pigmentation change [Unknown]
  - Weight decreased [Recovering/Resolving]
